FAERS Safety Report 6737949-0 (Version None)
Quarter: 2010Q2

REPORT INFORMATION
  Report Type: 
  Country: None (occurrence: None)
  Receive Date: 20100524
  Receipt Date: 20100126
  Transmission Date: 20101027
  Serious: Yes (Hospitalization)
  Sender: FDA-Public Use
  Company Number: A0842109A

PATIENT
  Age: 80 Year
  Sex: Male

DRUGS (2)
  1. ARZERRA [Suspect]
     Dosage: 300MG SINGLE DOSE
     Route: 042
     Dates: start: 20100121
  2. ANTIBIOTICS [Concomitant]

REACTIONS (1)
  - PNEUMONIA [None]
